FAERS Safety Report 13132600 (Version 2)
Quarter: 2018Q1

REPORT INFORMATION
  Report Type: Report from Study
  Country: US (occurrence: US)
  Receive Date: 20170120
  Receipt Date: 20180116
  Transmission Date: 20180508
  Serious: Yes (Hospitalization, Other)
  Sender: FDA-Public Use
  Company Number: US-ROCHE-1881138

PATIENT
  Age: 79 Year
  Sex: Male

DRUGS (3)
  1. LUCENTIS [Suspect]
     Active Substance: RANIBIZUMAB
     Indication: DIABETIC RETINAL OEDEMA
     Route: 050
  2. LUCENTIS [Suspect]
     Active Substance: RANIBIZUMAB
     Indication: DIABETIC RETINOPATHY
     Route: 050
     Dates: start: 201701
  3. LUCENTIS [Suspect]
     Active Substance: RANIBIZUMAB
     Indication: TYPE 2 DIABETES MELLITUS
     Route: 050

REACTIONS (5)
  - Prostate cancer [Not Recovered/Not Resolved]
  - Myocardial infarction [Recovered/Resolved]
  - Limb injury [Not Recovered/Not Resolved]
  - Blister [Unknown]
  - Myocardial infarction [Unknown]

NARRATIVE: CASE EVENT DATE: 201711
